FAERS Safety Report 17143147 (Version 1)
Quarter: 2019Q4

REPORT INFORMATION
  Report Type: Report from Study
  Country: IT (occurrence: IT)
  Receive Date: 20191212
  Receipt Date: 20191212
  Transmission Date: 20200122
  Serious: Yes (Other)
  Sender: FDA-Public Use
  Company Number: IT-TEVA-2019-IT-1149505

PATIENT
  Age: 73 Year
  Sex: Female

DRUGS (1)
  1. ALPRAZOLAM. [Suspect]
     Active Substance: ALPRAZOLAM
     Indication: ACCIDENTAL OVERDOSE
     Route: 048
     Dates: start: 20191020, end: 20191020

REACTIONS (3)
  - Accidental overdose [Recovering/Resolving]
  - Speech disorder [Recovering/Resolving]
  - Fall [Recovering/Resolving]

NARRATIVE: CASE EVENT DATE: 20191020
